FAERS Safety Report 15434810 (Version 1)
Quarter: 2018Q3

REPORT INFORMATION
  Report Type: Spontaneous
  Country: US (occurrence: US)
  Receive Date: 20180922
  Receipt Date: 20180922
  Transmission Date: 20181010
  Serious: Yes (Disabling)
  Sender: FDA-Public Use
  Company Number: None

PATIENT
  Age: 60 Year
  Sex: Female
  Weight: 83.7 kg

DRUGS (3)
  1. B12 VITAMINS [Concomitant]
  2. PAPAYA ENZYME TABLETS [Concomitant]
  3. LEVAQUIN [Suspect]
     Active Substance: LEVOFLOXACIN
     Indication: PNEUMONIA
     Dosage: ?          QUANTITY:5 TABLET(S);?
     Route: 048
     Dates: start: 20180204, end: 20180209

REACTIONS (8)
  - Dysphagia [None]
  - Gastrooesophageal reflux disease [None]
  - Pain in extremity [None]
  - Diarrhoea [None]
  - Arthralgia [None]
  - Muscular weakness [None]
  - Dyspepsia [None]
  - Musculoskeletal disorder [None]

NARRATIVE: CASE EVENT DATE: 20180207
